FAERS Safety Report 5268004-7 (Version None)
Quarter: 2007Q1

REPORT INFORMATION
  Report Type: 
  Country: None (occurrence: None)
  Receive Date: 20061213
  Receipt Date: 20040816
  Transmission Date: 20070707
  Serious: Yes (Other)
  Sender: FDA-Public Use
  Company Number: 2004UW14712

PATIENT
  Sex: Female

DRUGS (2)
  1. IRESSA [Suspect]
     Indication: NON-SMALL CELL LUNG CANCER
     Dates: start: 20040710
  2. IRESSA [Suspect]
     Indication: NON-SMALL CELL LUNG CANCER
     Dosage: 250 MG QOD PO
     Route: 048

REACTIONS (6)
  - BONE PAIN [None]
  - DIARRHOEA [None]
  - EYE PAIN [None]
  - PRURITUS [None]
  - RASH [None]
  - RASH VESICULAR [None]
